FAERS Safety Report 4736370-4 (Version None)
Quarter: 2005Q3

REPORT INFORMATION
  Report Type: 
  Country: None (occurrence: None)
  Receive Date: 20050802
  Receipt Date: 20050720
  Transmission Date: 20060218
  Serious: Yes (Other)
  Sender: FDA-Public Use
  Company Number: 2004121824

PATIENT
  Age: 55 Year
  Sex: Male
  Weight: 77.1115 kg

DRUGS (2)
  1. NEURONTIN [Suspect]
     Indication: RETINAL DETACHMENT
     Dosage: 600 MG (300 MG, 2 IN 1 D) ORAL
     Route: 048
     Dates: end: 20041201
  2. DITROPAN [Concomitant]

REACTIONS (4)
  - DIFFICULTY IN WALKING [None]
  - HYPOKINESIA [None]
  - VISION BLURRED [None]
  - VISUAL ACUITY REDUCED [None]
